FAERS Safety Report 14282632 (Version 1)
Quarter: 2017Q4

REPORT INFORMATION
  Report Type: Report from Study
  Country: AU (occurrence: AU)
  Receive Date: 20171213
  Receipt Date: 20171213
  Transmission Date: 20180321
  Serious: Yes (Other)
  Sender: FDA-Public Use
  Company Number: AU-REGENERON PHARMACEUTICALS, INC.-2017-28748

PATIENT

DRUGS (1)
  1. EYLEA [Suspect]
     Active Substance: AFLIBERCEPT
     Indication: NEOVASCULAR AGE-RELATED MACULAR DEGENERATION
     Dosage: DOSE AND FREQUENCY NOT PROVIDED. TOTAL DOSES TAKEN: 11; UNSPECIFIED NUMBER OF DOSES PRIOR EVENT
     Route: 031
     Dates: start: 20160810

REACTIONS (1)
  - Neovascular age-related macular degeneration [Not Recovered/Not Resolved]
